FAERS Safety Report 4335866-7 (Version None)
Quarter: 2004Q2

REPORT INFORMATION
  Report Type: 
  Country: None (occurrence: None)
  Receive Date: 20040405
  Receipt Date: 20040322
  Transmission Date: 20050107
  Serious: Yes (Hospitalization)
  Sender: FDA-Public Use
  Company Number: GRP04000061

PATIENT
  Age: 71 Year
  Sex: Female
  Weight: 61 kg

DRUGS (6)
  1. ACTONEL [Suspect]
     Indication: OSTEOPOROSIS
     Dosage: 5 MG, DAILY, ORAL
     Route: 048
     Dates: start: 20030801
  2. PREDNISOLONE [Suspect]
     Indication: SYSTEMIC LUPUS ERYTHEMATOSUS
     Dosage: 5 MG, DAILY, ORAL
     Route: 048
     Dates: start: 19970101
  3. SPIRO COMP. (SPIRONOLACTONE, FUROSEMIDE) [Suspect]
     Indication: OEDEMA PERIPHERAL
     Dosage: 1 TABLET, DAILY, ORAL
     Route: 048
     Dates: start: 20030701, end: 20031029
  4. CALCIMAGON [Concomitant]
  5. OMEPRAZOL ^AZUPHARMA^ (OMEPRAZOLE) [Concomitant]
  6. PANTOZOL (PANTOPRAZOLE SODIUM) [Concomitant]

REACTIONS (15)
  - ASPARTATE AMINOTRANSFERASE INCREASED [None]
  - BLOOD CALCIUM DECREASED [None]
  - BLOOD PRESSURE DIASTOLIC DECREASED [None]
  - GASTROINTESTINAL DISORDER [None]
  - GASTROINTESTINAL HAEMORRHAGE [None]
  - HAEMATOCRIT DECREASED [None]
  - HAEMOGLOBIN DECREASED [None]
  - HYPERPLASIA [None]
  - HYPERTROPHY [None]
  - INFLAMMATION [None]
  - INTERNATIONAL NORMALISED RATIO DECREASED [None]
  - MEAN CELL HAEMOGLOBIN DECREASED [None]
  - MEAN CELL VOLUME DECREASED [None]
  - POST PROCEDURAL HAEMORRHAGE [None]
  - RED BLOOD CELL COUNT DECREASED [None]
